FAERS Safety Report 18545514 (Version 1)
Quarter: 2020Q4

REPORT INFORMATION
  Report Type: Spontaneous
  Country: FR (occurrence: FR)
  Receive Date: 20201125
  Receipt Date: 20201125
  Transmission Date: 20210114
  Serious: Yes (Other)
  Sender: FDA-Public Use
  Company Number: FR-BAYER-2020-249320

PATIENT
  Age: 27 Year
  Sex: Female
  Weight: 103 kg

DRUGS (2)
  1. DOLIPRANE [Concomitant]
     Active Substance: ACETAMINOPHEN
     Dosage: UNK
     Route: 048
  2. MIRENA [Suspect]
     Active Substance: LEVONORGESTREL
     Indication: INTRAUTERINE CONTRACEPTION
     Dosage: 20 ?G PER DAY CONTINUOUSLY
     Route: 015
     Dates: start: 20200426

REACTIONS (11)
  - Abdominal pain [Not Recovered/Not Resolved]
  - Anxiety [Not Recovered/Not Resolved]
  - Affective disorder [Not Recovered/Not Resolved]
  - Gastrooesophageal reflux disease [Not Recovered/Not Resolved]
  - Headache [Not Recovered/Not Resolved]
  - Nausea [Not Recovered/Not Resolved]
  - Myalgia [Not Recovered/Not Resolved]
  - Fatigue [Not Recovered/Not Resolved]
  - Libido decreased [Not Recovered/Not Resolved]
  - Constipation [Not Recovered/Not Resolved]
  - Chest pain [Not Recovered/Not Resolved]

NARRATIVE: CASE EVENT DATE: 20200427
